FAERS Safety Report 20511769 (Version 1)
Quarter: 2022Q1

REPORT INFORMATION
  Report Type: Other
  Country: US (occurrence: None)
  Receive Date: 20220224
  Receipt Date: 20220224
  Transmission Date: 20220423
  Serious: Yes (Other)
  Sender: FDA-Public Use
  Company Number: US-ROCHE-3032626

PATIENT
  Sex: Female
  Weight: 67.192 kg

DRUGS (11)
  1. XOLAIR [Suspect]
     Active Substance: OMALIZUMAB
     Indication: Idiopathic urticaria
     Dosage: ONE INJECTION IN THE BACK OF EACH ARM; THEY PINCH THE SKIN THEN GIVE THE INJECTION
     Route: 058
     Dates: start: 2017
  2. TRELEGY ELLIPTA [Concomitant]
     Active Substance: FLUTICASONE FUROATE\UMECLIDINIUM BROMIDE\VILANTEROL TRIFENATATE
     Indication: Chronic obstructive pulmonary disease
     Dosage: 100 MCG/6.25 MCG/25 MCG DOSAGE; STARTED AFTER XOLAIR ;ONGOING: YES
  3. DALIRESP [Concomitant]
     Active Substance: ROFLUMILAST
  4. BISOPROLOL FUMARATE [Concomitant]
     Active Substance: BISOPROLOL FUMARATE
     Indication: Palpitations
     Dosage: (2) 500 MG TABLETS; STARTED BEFORE XOLAIR ;ONGOING: YES
  5. CITALOPRAM [Concomitant]
     Active Substance: CITALOPRAM HYDROBROMIDE
     Indication: Anxiety
     Dosage: STARTED BEFORE XOLAIR ;ONGOING: YES
  6. ASPIRIN [Concomitant]
     Active Substance: ASPIRIN
     Dosage: STARTED BEFORE XOLAIR ;ONGOING: YES
  7. PANTOPRAZOLE [Concomitant]
     Active Substance: PANTOPRAZOLE
     Indication: Gastrooesophageal reflux disease
     Dates: start: 2021
  8. LOSARTAN [Concomitant]
     Active Substance: LOSARTAN
     Indication: Hypertension
     Dates: start: 2021
  9. CETIRIZINE [Concomitant]
     Active Substance: CETIRIZINE HYDROCHLORIDE
     Indication: Hypersensitivity
     Dosage: STARTED BEFORE XOLAIR ;ONGOING: YES
  10. AMITRIPTYLINE [Concomitant]
     Active Substance: AMITRIPTYLINE
     Indication: Headache
     Dosage: TAKES AT NIGHT; STARTED AFTER XOLAIR ;ONGOING: YES
  11. MONTELUKAST [Concomitant]
     Active Substance: MONTELUKAST SODIUM
     Dosage: TAKES AT BEDTIME; STARTED BEFORE XOLAIR ;ONGOING: YES

REACTIONS (8)
  - COVID-19 [Recovered/Resolved]
  - Pulmonary mass [Not Recovered/Not Resolved]
  - Investigation abnormal [Not Recovered/Not Resolved]
  - Gastrooesophageal reflux disease [Not Recovered/Not Resolved]
  - Cholelithiasis [Recovered/Resolved]
  - Hypertension [Not Recovered/Not Resolved]
  - Headache [Not Recovered/Not Resolved]
  - Chronic respiratory failure [Not Recovered/Not Resolved]

NARRATIVE: CASE EVENT DATE: 20190101
